FAERS Safety Report 12318346 (Version 1)
Quarter: 2016Q2

REPORT INFORMATION
  Report Type: Spontaneous
  Country: US (occurrence: US)
  Receive Date: 20160429
  Receipt Date: 20160429
  Transmission Date: 20160815
  Serious: Yes (Other)
  Sender: FDA-Public Use
  Company Number: US-PFIZER INC-2016237022

PATIENT
  Sex: Female

DRUGS (1)
  1. ZOLOFT [Suspect]
     Active Substance: SERTRALINE HYDROCHLORIDE
     Dosage: 25 MG, UNK

REACTIONS (7)
  - Concussion [Unknown]
  - Foreign body [Unknown]
  - Headache [Unknown]
  - Head injury [Unknown]
  - Insomnia [Unknown]
  - Fall [Unknown]
  - Palpitations [Unknown]
